FAERS Safety Report 7542011-3 (Version None)
Quarter: 2011Q2

REPORT INFORMATION
  Report Type: 
  Country: None (occurrence: None)
  Receive Date: 20110606
  Receipt Date: 20110526
  Transmission Date: 20111010
  Serious: Yes (Disabling)
  Sender: FDA-Public Use
  Company Number: GB-ACCORD-009371

PATIENT
  Age: 76 Year
  Sex: Male
  Weight: 86 kg

DRUGS (11)
  1. FLOXACILLIN SODIUM [Concomitant]
  2. ZOLADEX (ZOLADEX) [Concomitant]
  3. BICALUTAMIDE [Suspect]
     Indication: PRODUCT USED FOR UNKNOWN INDICATION
     Dosage: 50.00-MG-/ ORAL
     Route: 048
     Dates: start: 20110104, end: 20110301
  4. ASPIRIN [Concomitant]
  5. BISOPROLOL FUMARATE [Concomitant]
  6. KETOCONAZOLE [Concomitant]
  7. BETAMETHASONE VALERATE [Concomitant]
  8. PARAFFIN (PARAFFIN) [Concomitant]
  9. ACETAMINOPHEN [Concomitant]
  10. HYDROCORTONE [Concomitant]
  11. HYPROMELLOSE (HYPROMELLOSE) [Concomitant]

REACTIONS (5)
  - EYE PAIN [None]
  - JOINT SWELLING [None]
  - DISABILITY [None]
  - EYE PRURITUS [None]
  - PENILE OEDEMA [None]
